FAERS Safety Report 11860541 (Version 2)
Quarter: 2016Q2

REPORT INFORMATION
  Report Type: Spontaneous
  Country: US (occurrence: US)
  Receive Date: 20151222
  Receipt Date: 20160520
  Transmission Date: 20160815
  Serious: Yes (Other)
  Sender: FDA-Public Use
  Company Number: US-BAYER-2015-486992

PATIENT
  Sex: Male

DRUGS (2)
  1. XOFIGO [Suspect]
     Active Substance: RADIUM RA-223 DICHLORIDE
     Indication: PROSTATE CANCER STAGE IV
     Dosage: UNK
     Route: 042
     Dates: start: 20151102, end: 20151102
  2. XOFIGO [Suspect]
     Active Substance: RADIUM RA-223 DICHLORIDE
     Indication: METASTASES TO BONE
     Dosage: 75.8 ?CI, ONCE
     Route: 042
     Dates: start: 20160414, end: 20160414

REACTIONS (3)
  - Fatigue [None]
  - Prostate cancer metastatic [None]
  - Diarrhoea [None]
